FAERS Safety Report 6928197-X (Version None)
Quarter: 2010Q3

REPORT INFORMATION
  Report Type: 
  Country: None (occurrence: None)
  Receive Date: 20100817
  Receipt Date: 20100804
  Transmission Date: 20110219
  Serious: Yes (Hospitalization, Disabling)
  Sender: FDA-Public Use
  Company Number: DE-ROCHE-678211

PATIENT
  Sex: Male
  Weight: 77 kg

DRUGS (3)
  1. BEVACIZUMAB [Suspect]
     Dosage: 5MG/KG. FREQUENCY:D 1+22
     Route: 042
     Dates: start: 20091118, end: 20091202
  2. CAPECITABINE [Suspect]
     Dosage: 825MG/M2. FREQUENCY:D 1-14, D22-36
     Route: 048
     Dates: start: 20091118, end: 20091223
  3. OXALIPLATIN [Suspect]
     Dosage: 50MG/M2. FREQUENCY:D1+8+22+29
     Route: 042
     Dates: start: 20091118, end: 20091216

REACTIONS (2)
  - DIARRHOEA [None]
  - PROCTITIS [None]
